FAERS Safety Report 8601031-8 (Version None)
Quarter: 2012Q2

REPORT INFORMATION
  Report Type: 
  Country: None (occurrence: None)
  Receive Date: 20120423
  Receipt Date: 20100303
  Transmission Date: 20120825
  Serious: Yes (Other)
  Sender: FDA-Public Use
  Company Number: PHEH2010US01768

PATIENT
  Age: 59 Year
  Sex: Female

DRUGS (8)
  1. QUESTRAN [Concomitant]
  2. MULTIPLE VITAMINS (ASCORBIC ACID, ERGOCALCIFEROL, FOLIC ACID, RETINOL, [Concomitant]
  3. CALCIUM CARBONATE [Concomitant]
  4. FEMARA [Suspect]
     Dosage: 2.5 MG, ORAL
     Route: 048
     Dates: start: 20100127
  5. FIORICET [Concomitant]
  6. RADIATION THERAPY (NO INGREDIENTS/SUBSTANCES) [Concomitant]
  7. LEVAQUIN [Concomitant]
  8. KLONOPIN [Concomitant]

REACTIONS (8)
  - EYELID OEDEMA [None]
  - HEADACHE [None]
  - FATIGUE [None]
  - ABDOMINAL PAIN UPPER [None]
  - SOMNOLENCE [None]
  - BREAST PAIN [None]
  - URTICARIA [None]
  - RASH PRURITIC [None]
